FAERS Safety Report 16403527 (Version 4)
Quarter: 2025Q3

REPORT INFORMATION
  Report Type: Spontaneous
  Country: EU (occurrence: EU)
  Receive Date: 20190607
  Receipt Date: 20250910
  Transmission Date: 20251020
  Serious: Yes (Life-Threatening, Hospitalization, Other)
  Sender: AUROBINDO
  Company Number: EU-AUROBINDO-AUR-APL-2019-031625

PATIENT
  Age: 33 Year
  Sex: Male

DRUGS (12)
  1. MIRTAZAPINE [Interacting]
     Active Substance: MIRTAZAPINE
     Indication: Major depression
     Dosage: 30 MILLIGRAM, ONCE A DAY
     Route: 065
  2. MIRTAZAPINE [Interacting]
     Active Substance: MIRTAZAPINE
     Dosage: 45 MILLIGRAM, ONCE A DAY
     Route: 065
  3. ALPRAZOLAM [Interacting]
     Active Substance: ALPRAZOLAM
     Indication: Major depression
     Dosage: 0.5 MILLIGRAM, ONCE A DAY, 0,5 MG/TID-THREE TIMES A DAY
     Route: 065
  4. ALPRAZOLAM [Interacting]
     Active Substance: ALPRAZOLAM
     Dosage: 1.5 MILLIGRAM, ONCE A DAY
     Route: 065
  5. CLOMIPRAMINE [Interacting]
     Active Substance: CLOMIPRAMINE
     Indication: Depression
     Route: 065
  6. CLOMIPRAMINE [Interacting]
     Active Substance: CLOMIPRAMINE
     Indication: Anxiety
     Dosage: 10 MILLIGRAM, ONCE A DAY, 10 MG, 2X/DAY
     Route: 065
  7. CLOMIPRAMINE [Interacting]
     Active Substance: CLOMIPRAMINE
     Indication: Suicidal ideation
     Dosage: 20 MILLIGRAM, ONCE A DAY
     Route: 065
  8. RISPERIDONE [Interacting]
     Active Substance: RISPERIDONE
     Indication: Major depression
     Route: 065
  9. RISPERIDONE [Interacting]
     Active Substance: RISPERIDONE
     Dosage: 2 MILLIGRAM, ONCE A DAY, 2 MG, 1X/DAY, NOT MORE THAN 2 MG PER DAY, GIVEN OCCASIONALLY
     Route: 065
  10. RISPERIDONE [Interacting]
     Active Substance: RISPERIDONE
     Dosage: 4 MILLIGRAM, ONCE A DAY, 4 MG/OD
     Route: 065
  11. VENLAFAXINE [Concomitant]
     Active Substance: VENLAFAXINE HYDROCHLORIDE
     Indication: Major depression
     Dosage: 75 MILLIGRAM, ONCE A DAY, 75 MG/OD
     Route: 065
  12. VENLAFAXINE [Concomitant]
     Active Substance: VENLAFAXINE HYDROCHLORIDE
     Dosage: 75 MILLIGRAM, ONCE A DAY, 75 MG, 1X/DAY
     Route: 065

REACTIONS (25)
  - Serotonin syndrome [Recovered/Resolved]
  - Neuroleptic malignant syndrome [Recovered/Resolved]
  - Toxicity to various agents [Recovered/Resolved]
  - Drug interaction [Recovered/Resolved]
  - Pyrexia [Recovering/Resolving]
  - Dysphagia [Recovering/Resolving]
  - Anxiety [Recovering/Resolving]
  - Hyperhidrosis [Recovering/Resolving]
  - Cogwheel rigidity [Recovering/Resolving]
  - Restlessness [Recovering/Resolving]
  - Tremor [Recovering/Resolving]
  - Bradykinesia [Recovering/Resolving]
  - Slow response to stimuli [Recovering/Resolving]
  - Tachycardia [Recovering/Resolving]
  - Insomnia [Recovering/Resolving]
  - Muscle rigidity [Recovering/Resolving]
  - Gastrointestinal disorder [Recovering/Resolving]
  - Toxicity to various agents [Recovered/Resolved]
  - Salivary hypersecretion [Recovering/Resolving]
  - Psychomotor hyperactivity [Recovering/Resolving]
  - Hyperreflexia [Recovering/Resolving]
  - Pallor [Recovering/Resolving]
  - Clonus [Recovering/Resolving]
  - Depressed mood [Recovering/Resolving]
  - Akathisia [Recovering/Resolving]
